FAERS Safety Report 5843704-6 (Version None)
Quarter: 2008Q3

REPORT INFORMATION
  Report Type: 
  Country: None (occurrence: None)
  Receive Date: 20080813
  Receipt Date: 20080421
  Transmission Date: 20090109
  Serious: Yes (Life-Threatening, Other)
  Sender: FDA-Public Use
  Company Number: US-BRISTOL-MYERS SQUIBB COMPANY-14139588

PATIENT
  Age: 43 Year
  Sex: Female

DRUGS (5)
  1. IXEMPRA KIT [Suspect]
     Indication: BREAST CANCER METASTATIC
     Dosage: CYCLE 1 :40MG/M2,65.2 MG GIVEN ON 19FEB CYCLE 2:40MG/M2,64MG GIVEN ON 13MAR DURATION:~5 MIN
     Route: 042
     Dates: start: 20080404, end: 20080404
  2. DECADRON SRC [Concomitant]
     Indication: PREMEDICATION
     Dosage: GIVEN 30 MIN WUTH INFUSION.
     Route: 042
     Dates: start: 20080404
  3. PEPCID [Concomitant]
     Indication: PREMEDICATION
     Dosage: 30MG GIVEN FOR 30 MIN WITH CHEMOTHERAPY.
     Route: 042
     Dates: start: 20080404
  4. BENADRYL [Concomitant]
     Indication: PREMEDICATION
     Dosage: GIVEN FOR 30 MIN WITH CHEMO.
     Route: 042
     Dates: start: 20080404
  5. ANZEMET [Concomitant]
     Indication: PREMEDICATION
     Route: 048
     Dates: start: 20080404

REACTIONS (1)
  - HYPERSENSITIVITY [None]
